FAERS Safety Report 4809416-2 (Version None)
Quarter: 2005Q4

REPORT INFORMATION
  Report Type: 
  Country: None (occurrence: None)
  Receive Date: 20051021
  Receipt Date: 20051012
  Transmission Date: 20060501
  Serious: Yes (Disabling, Other)
  Sender: FDA-Public Use
  Company Number: 2005142142

PATIENT
  Age: 46 Year
  Sex: Female
  Weight: 90.7194 kg

DRUGS (11)
  1. GABAPENTIN [Suspect]
     Indication: NERVE BLOCK
     Dosage: 900 MG (300 MG, 3 IN 1 D)
     Dates: start: 20050101
  2. LEXAPRO [Concomitant]
  3. PAMELOR [Concomitant]
  4. AVANDIA [Concomitant]
  5. SYNTHROID [Concomitant]
  6. METHADONE [Concomitant]
  7. KLONOPIN [Concomitant]
  8. RESTORIL [Concomitant]
  9. VITAMIN D [Concomitant]
  10. CALCIUM WITH VITAMIN D (CALCIUM PHOSPHATE, CALCIUM SODIUM LACTATE, ERG [Concomitant]
  11. ALL OTHER THERAPEUTIC PRODUCTS [Concomitant]

REACTIONS (2)
  - ACROMEGALY [None]
  - BRAIN NEOPLASM [None]
